FAERS Safety Report 9717143 (Version 2)
Quarter: 2013Q4

REPORT INFORMATION
  Report Type: Spontaneous
  Country: FR (occurrence: FR)
  Receive Date: 20131127
  Receipt Date: 20131127
  Transmission Date: 20140711
  Serious: Yes (Other)
  Sender: FDA-Public Use
  Company Number: FR-PFIZER INC-2013338884

PATIENT
  Age: 57 Year
  Sex: Male

DRUGS (1)
  1. EUPANTOL [Suspect]
     Dosage: UNK
     Route: 048
     Dates: start: 20130608, end: 20130618

REACTIONS (2)
  - Renal failure [Unknown]
  - Respiratory tract infection [Unknown]
